FAERS Safety Report 9666960 (Version 1)
Quarter: 2013Q4

REPORT INFORMATION
  Report Type: Spontaneous
  Country: US (occurrence: US)
  Receive Date: 20131104
  Receipt Date: 20131104
  Transmission Date: 20140711
  Serious: No
  Sender: FDA-Public Use
  Company Number: US-BIOGENIDEC-2013BI088580

PATIENT
  Sex: Female

DRUGS (7)
  1. TECFIDERA [Suspect]
     Indication: MULTIPLE SCLEROSIS
     Route: 048
  2. TECFIDERA [Suspect]
     Indication: MULTIPLE SCLEROSIS
     Route: 048
  3. MAXALT [Concomitant]
  4. TRICOR [Concomitant]
  5. NEURONTIN [Concomitant]
  6. VITAMIN D3 [Concomitant]
  7. PROZAC [Concomitant]

REACTIONS (1)
  - Abdominal discomfort [Recovered/Resolved]
